FAERS Safety Report 18254208 (Version 1)
Quarter: 2020Q3

REPORT INFORMATION
  Report Type: Spontaneous
  Country: FR (occurrence: FR)
  Receive Date: 20200910
  Receipt Date: 20200910
  Transmission Date: 20201103
  Serious: Yes (Other)
  Sender: FDA-Public Use
  Company Number: FR-AMGEN-FRASP2020144607

PATIENT
  Age: 36 Year
  Sex: Female

DRUGS (1)
  1. AMGEVITA [Suspect]
     Active Substance: ADALIMUMAB
     Indication: SPONDYLITIS
     Dosage: 1 DOSAGE FORM, Q2WK
     Route: 058
     Dates: start: 202001, end: 20200709

REACTIONS (1)
  - Paradoxical psoriasis [Not Recovered/Not Resolved]

NARRATIVE: CASE EVENT DATE: 20200526
